FAERS Safety Report 18377506 (Version 1)
Quarter: 2020Q4

REPORT INFORMATION
  Report Type: Spontaneous
  Country: GB (occurrence: GB)
  Receive Date: 20201013
  Receipt Date: 20201013
  Transmission Date: 20210114
  Serious: Yes (Death, Hospitalization)
  Sender: FDA-Public Use
  Company Number: GB-JNJFOC-20201014988

PATIENT
  Age: 70 Year
  Sex: Male

DRUGS (5)
  1. FUROSEMIDE. [Concomitant]
     Active Substance: FUROSEMIDE
     Dosage: MORNING
  2. LOSARTAN. [Concomitant]
     Active Substance: LOSARTAN
     Dosage: 100 MG, QD
  3. BISOPROLOL [Concomitant]
     Active Substance: BISOPROLOL
     Dosage: MORNING
  4. XARELTO [Suspect]
     Active Substance: RIVAROXABAN
     Indication: ATRIAL FIBRILLATION
     Dosage: MORNING
     Route: 048
     Dates: start: 20150722
  5. ATORVASTATIN [Concomitant]
     Active Substance: ATORVASTATIN
     Dosage: 20 MG, QD

REACTIONS (4)
  - Disorientation [Fatal]
  - Subarachnoid haemorrhage [Fatal]
  - Generalised tonic-clonic seizure [Fatal]
  - Headache [Fatal]
